FAERS Safety Report 4782995-X (Version None)
Quarter: 2005Q3

REPORT INFORMATION
  Report Type: 
  Country: None (occurrence: None)
  Receive Date: 20050929
  Receipt Date: 20050926
  Transmission Date: 20060218
  Serious: Yes (Death)
  Sender: FDA-Public Use
  Company Number: 2005GB01861

PATIENT
  Age: 47 Year
  Sex: Male

DRUGS (2)
  1. SEROQUEL [Suspect]
     Indication: SCHIZOPHRENIA
     Route: 048
  2. CLOPIXOL [Suspect]
     Indication: SCHIZOPHRENIA

REACTIONS (3)
  - CONSTIPATION [None]
  - DEATH [None]
  - DRY MOUTH [None]
